FAERS Safety Report 24780454 (Version 1)
Quarter: 2024Q4

REPORT INFORMATION
  Report Type: Report from Study
  Country: US (occurrence: US)
  Receive Date: 20241227
  Receipt Date: 20241227
  Transmission Date: 20250115
  Serious: Yes (Death)
  Sender: CSL BEHRING
  Company Number: US-BEH-2024178037

PATIENT
  Age: 45 Year
  Sex: Male
  Weight: 230 kg

DRUGS (1)
  1. HIZENTRA [Suspect]
     Active Substance: HUMAN IMMUNOGLOBULIN G
     Dosage: (PRODUCT STRENGTH 2)
     Route: 065

REACTIONS (5)
  - Death [Fatal]
  - Rash macular [Unknown]
  - Therapy cessation [Unknown]
  - Musculoskeletal discomfort [Unknown]
  - Hypoaesthesia [Unknown]

NARRATIVE: CASE EVENT DATE: 20240829
